FAERS Safety Report 8962827 (Version 1)
Quarter: 2012Q4

REPORT INFORMATION
  Report Type: 
  Country: NL (occurrence: NL)
  Receive Date: 20121214
  Receipt Date: 20121214
  Transmission Date: 20130627
  Serious: Yes (Hospitalization)
  Sender: FDA-Public Use
  Company Number: NL-PFIZER INC-2012312487

PATIENT
  Age: 61 Year
  Sex: Male

DRUGS (8)
  1. ATORVASTATIN CALCIUM [Suspect]
     Dosage: 10 mg, once daily
     Dates: start: 2005
  2. AMLODIPINE BESILATE [Suspect]
     Dosage: 10 mg, once daily
     Dates: start: 201208
  3. AMLODIPINE BESILATE [Suspect]
     Dosage: 10 mg, 1x/day
  4. NITROGLYCERIN [Concomitant]
     Dosage: 0.8 mg, as needed
  5. CARVEDILOL [Concomitant]
     Dosage: 6.25 mg, twice daily
  6. PANTOPRAZOL [Concomitant]
     Dosage: 40 mg, once daily
  7. CARBASALATE CALCIUM [Concomitant]
     Dosage: 100 mg, once daily
  8. CLOPIDOGREL [Concomitant]
     Dosage: 75 mg, once daily

REACTIONS (4)
  - Muscle spasms [Not Recovered/Not Resolved]
  - Trismus [Not Recovered/Not Resolved]
  - Hypoaesthesia [Not Recovered/Not Resolved]
  - Pain in jaw [Not Recovered/Not Resolved]
